FAERS Safety Report 7001148-8 (Version None)
Quarter: 2010Q3

REPORT INFORMATION
  Report Type: 
  Country: None (occurrence: None)
  Receive Date: 20100920
  Receipt Date: 20100910
  Transmission Date: 20110219
  Serious: Yes (Hospitalization)
  Sender: FDA-Public Use
  Company Number: JP-ROCHE-715239

PATIENT
  Sex: Female
  Weight: 40 kg

DRUGS (15)
  1. TOCILIZUMAB [Suspect]
     Indication: RHEUMATOID ARTHRITIS
     Route: 041
     Dates: start: 20091008, end: 20091008
  2. TOCILIZUMAB [Suspect]
     Dosage: INFUSED
     Route: 041
     Dates: start: 20091106, end: 20091106
  3. TOCILIZUMAB [Suspect]
     Dosage: INFUSED
     Route: 041
     Dates: start: 20091205, end: 20091205
  4. TOCILIZUMAB [Suspect]
     Route: 041
     Dates: start: 20100608
  5. METOLATE [Concomitant]
     Route: 048
  6. ISCOTIN [Concomitant]
     Route: 048
     Dates: start: 20050902
  7. PREDNISOLONE [Concomitant]
     Route: 048
     Dates: end: 20091105
  8. PREDNISOLONE [Concomitant]
     Route: 048
     Dates: start: 20091106, end: 20091108
  9. PREDNISOLONE [Concomitant]
     Route: 048
     Dates: start: 20091109, end: 20091130
  10. PREDNISOLONE [Concomitant]
     Route: 048
     Dates: start: 20091201
  11. VOLTAREN [Concomitant]
     Route: 048
  12. SELBEX [Concomitant]
     Route: 048
  13. ALFAROL [Concomitant]
     Route: 048
  14. FAMOTIDINE [Concomitant]
     Route: 048
  15. BENET [Concomitant]
     Route: 048

REACTIONS (1)
  - VASCULITIS [None]
